FAERS Safety Report 21651251 (Version 1)
Quarter: 2022Q4

REPORT INFORMATION
  Report Type: Report from Study
  Country: US (occurrence: US)
  Receive Date: 20221128
  Receipt Date: 20221128
  Transmission Date: 20230113
  Serious: No
  Sender: FDA-Public Use
  Company Number: US-ABBVIE-4183002

PATIENT
  Sex: Female

DRUGS (1)
  1. RINVOQ [Suspect]
     Active Substance: UPADACITINIB
     Indication: Rheumatoid arthritis
     Dosage: FORM STRENGTH: 15 MG
     Route: 048

REACTIONS (8)
  - Palpitations [Unknown]
  - Dyspnoea [Unknown]
  - Herpes simplex [Unknown]
  - Headache [Unknown]
  - Lethargy [Unknown]
  - Dizziness [Unknown]
  - Contusion [Unknown]
  - Rheumatoid arthritis [Unknown]
